FAERS Safety Report 24603280 (Version 1)
Quarter: 2024Q4

REPORT INFORMATION
  Report Type: Spontaneous
  Country: CN (occurrence: CN)
  Receive Date: 20241111
  Receipt Date: 20241111
  Transmission Date: 20250114
  Serious: Yes (Other)
  Sender: ASTELLAS
  Company Number: CN-ASTELLAS-2024-AER-017262

PATIENT
  Sex: Male

DRUGS (1)
  1. XTANDI [Suspect]
     Active Substance: ENZALUTAMIDE
     Indication: Prostate cancer
     Dosage: 4 CAPSULES ONCE DAILY
     Route: 065
     Dates: start: 202407

REACTIONS (2)
  - Alanine aminotransferase increased [Unknown]
  - Vomiting [Unknown]

NARRATIVE: CASE EVENT DATE: 20240901
